FAERS Safety Report 15228584 (Version 1)
Quarter: 2018Q3

REPORT INFORMATION
  Report Type: Spontaneous
  Country: US (occurrence: US)
  Receive Date: 20180801
  Receipt Date: 20180801
  Transmission Date: 20181010
  Serious: No
  Sender: FDA-Public Use
  Company Number: US-SA-2018SA205119

PATIENT
  Age: 34 Year
  Sex: Female

DRUGS (4)
  1. KETOCONAZOLE. [Concomitant]
     Active Substance: KETOCONAZOLE
  2. HYDROXYZINE HCL [Concomitant]
     Active Substance: HYDROXYZINE HYDROCHLORIDE
  3. DUPIXENT [Suspect]
     Active Substance: DUPILUMAB
     Indication: DERMATITIS ATOPIC
     Dosage: 600 MG, 1X
     Route: 058
     Dates: start: 20180710
  4. AMMONIUM LACTATE. [Concomitant]
     Active Substance: AMMONIUM LACTATE

REACTIONS (5)
  - Rhinorrhoea [Unknown]
  - Sneezing [Unknown]
  - Rash [Unknown]
  - Pyrexia [Unknown]
  - Lacrimation increased [Unknown]

NARRATIVE: CASE EVENT DATE: 201807
